FAERS Safety Report 10904258 (Version 1)
Quarter: 2015Q1

REPORT INFORMATION
  Report Type: Report from Study
  Country: US (occurrence: None)
  Receive Date: 20150306
  Receipt Date: 20150306
  Transmission Date: 20150721
  Serious: Yes (Hospitalization)
  Sender: FDA-Public Use
  Company Number: 2015SA021979

PATIENT
  Age: 50 Year
  Sex: Female

DRUGS (3)
  1. BETASERON [Concomitant]
     Active Substance: INTERFERON BETA-1B
  2. REBIF [Concomitant]
     Active Substance: INTERFERON BETA-1A
  3. AUBAGIO [Suspect]
     Active Substance: TERIFLUNOMIDE
     Indication: MULTIPLE SCLEROSIS
     Route: 048
     Dates: start: 20141208, end: 20150201

REACTIONS (1)
  - Hepatic enzyme increased [None]
